FAERS Safety Report 5164884-4 (Version None)
Quarter: 2006Q4

REPORT INFORMATION
  Report Type: 
  Country: None (occurrence: None)
  Receive Date: 20061124
  Receipt Date: 20061116
  Transmission Date: 20070319
  Serious: Yes (Other)
  Sender: FDA-Public Use
  Company Number: US-GDP-0613798

PATIENT
  Age: 66 Year
  Sex: Female

DRUGS (2)
  1. METROGEL [Suspect]
     Indication: ROSACEA
     Dosage: 1 APP ONCE TP
     Route: 061
     Dates: start: 20061104, end: 20061104
  2. ESTRADIOL INJ [Concomitant]

REACTIONS (7)
  - BLISTER [None]
  - DYSPNOEA [None]
  - NAUSEA [None]
  - PAIN [None]
  - PRURITUS GENERALISED [None]
  - RASH GENERALISED [None]
  - SWOLLEN TONGUE [None]
